FAERS Safety Report 4690530-X (Version None)
Quarter: 2005Q2

REPORT INFORMATION
  Report Type: 
  Country: None (occurrence: None)
  Receive Date: 20050613
  Receipt Date: 20050527
  Transmission Date: 20051028
  Serious: Yes (Other)
  Sender: FDA-Public Use
  Company Number: 430004L05GBR

PATIENT

DRUGS (2)
  1. MITOXANTRONE [Suspect]
     Indication: BREAST CANCER
  2. CYCOPHOSPHAMIDE [Concomitant]

REACTIONS (1)
  - ACUTE PROMYELOCYTIC LEUKAEMIA [None]
